FAERS Safety Report 20357545 (Version 1)
Quarter: 2022Q1

REPORT INFORMATION
  Report Type: Report from Study
  Country: IN (occurrence: None)
  Receive Date: 20220120
  Receipt Date: 20220120
  Transmission Date: 20220423
  Serious: Yes (Death)
  Sender: FDA-Public Use
  Company Number: IN-Merck Healthcare KGaA-9270904

PATIENT
  Age: 70 Year
  Sex: Male

DRUGS (1)
  1. BAVENCIO [Suspect]
     Active Substance: AVELUMAB
     Indication: Transitional cell carcinoma
     Route: 042
     Dates: end: 20211108

REACTIONS (3)
  - Death [Fatal]
  - General physical health deterioration [Unknown]
  - Product dose omission issue [Recovered/Resolved with Sequelae]

NARRATIVE: CASE EVENT DATE: 20211005
